FAERS Safety Report 16342204 (Version 1)
Quarter: 2019Q2

REPORT INFORMATION
  Report Type: Spontaneous
  Country: US (occurrence: US)
  Receive Date: 20190521
  Receipt Date: 20190521
  Transmission Date: 20190711
  Serious: No
  Sender: FDA-Public Use
  Company Number: None

PATIENT
  Sex: Female

DRUGS (1)
  1. SPIRONOLACTONE 25MG QD [Suspect]
     Active Substance: SPIRONOLACTONE

REACTIONS (2)
  - Abdominal discomfort [None]
  - Headache [None]
